FAERS Safety Report 25950965 (Version 1)
Quarter: 2025Q4

REPORT INFORMATION
  Report Type: Spontaneous
  Country: US (occurrence: US)
  Receive Date: 20251023
  Receipt Date: 20251023
  Transmission Date: 20260117
  Serious: No
  Sender: KARYOPHARM THERAPEUTICS
  Company Number: US-KARYOPHARM-2025KPT100847

PATIENT

DRUGS (9)
  1. SELINEXOR [Suspect]
     Active Substance: SELINEXOR
     Indication: Plasma cell myeloma
     Dosage: 40 MG WEEKLY
     Route: 048
     Dates: start: 20251015
  2. ASPIRIN [Concomitant]
     Active Substance: ASPIRIN
  3. LOSARTAN POTASSIUM [Concomitant]
     Active Substance: LOSARTAN POTASSIUM
  4. ACYCLOVIR [Concomitant]
     Active Substance: ACYCLOVIR
  5. PROAIR HFA [Concomitant]
     Active Substance: ALBUTEROL SULFATE
  6. OLANZAPINE [Concomitant]
     Active Substance: OLANZAPINE
  7. REMERON [Concomitant]
     Active Substance: MIRTAZAPINE
  8. OXYCODONE HYDROCHLORIDE [Concomitant]
     Active Substance: OXYCODONE HYDROCHLORIDE
  9. DEXAMETHASONE [Concomitant]
     Active Substance: DEXAMETHASONE

REACTIONS (3)
  - Abdominal discomfort [Unknown]
  - Decreased appetite [Unknown]
  - Vomiting [Unknown]

NARRATIVE: CASE EVENT DATE: 20251001
